FAERS Safety Report 5543683-5 (Version None)
Quarter: 2007Q4

REPORT INFORMATION
  Report Type: 
  Country: None (occurrence: None)
  Receive Date: 20071206
  Receipt Date: 20071129
  Transmission Date: 20080405
  Serious: Yes (Other)
  Sender: FDA-Public Use
  Company Number: JPI-P-002561

PATIENT
  Sex: Female

DRUGS (4)
  1. XYREM [Suspect]
     Indication: DRUG USE FOR UNKNOWN INDICATION
     Dosage: (3/4 OF A BOTTLE OF XYREM), ORAL
     Route: 048
  2. DIPHENHYDRAMINE (DIPHENHYDRAMINE) (25 MILLIGRAM, PILL) [Suspect]
     Indication: DRUG USE FOR UNKNOWN INDICATION
     Dosage: (50 PILLS AT 25 MG EACH), ORAL
     Route: 048
  3. IBUPROFEN [Suspect]
     Indication: DRUG USE FOR UNKNOWN INDICATION
     Dosage: (50 PILLS AT 200 MG EACH), ORAL
     Route: 048
  4. UNSPECIFIED TYPE OF NYQUIL (MEDINITE /00448801/) [Suspect]
     Indication: DRUG USE FOR UNKNOWN INDICATION
     Dosage: (10 PILLS), ORAL
     Route: 048

REACTIONS (3)
  - AGITATION [None]
  - DEPRESSED LEVEL OF CONSCIOUSNESS [None]
  - MULTIPLE DRUG OVERDOSE INTENTIONAL [None]
